FAERS Safety Report 23429758 (Version 1)
Quarter: 2024Q1

REPORT INFORMATION
  Report Type: Spontaneous
  Country: GB (occurrence: GB)
  Receive Date: 20240122
  Receipt Date: 20240122
  Transmission Date: 20240410
  Serious: Yes (Other)
  Sender: FDA-Public Use
  Company Number: GB-NORGINE LIMITED-NOR202400297

PATIENT
  Age: 18 Year
  Sex: Female
  Weight: 52 kg

DRUGS (1)
  1. MOVIPREP [Suspect]
     Active Substance: ASCORBIC ACID\POLYETHYLENE GLYCOL 3350\POTASSIUM CHLORIDE\SODIUM ASCORBATE\SODIUM CHLORIDE\SODIUM SU
     Indication: Bowel preparation
     Dosage: AT 2:00 PM
     Route: 065
     Dates: start: 202401, end: 20240111

REACTIONS (5)
  - Fatigue [Recovered/Resolved]
  - Confusional state [Recovered/Resolved]
  - Feeling cold [Recovered/Resolved]
  - Palpitations [Recovered/Resolved]
  - Vomiting [Recovered/Resolved]

NARRATIVE: CASE EVENT DATE: 20240101
